FAERS Safety Report 8639543 (Version 3)
Quarter: 2013Q3

REPORT INFORMATION
  Report Type: Spontaneous
  Country: FR (occurrence: None)
  Receive Date: 20120614
  Receipt Date: 20130816
  Transmission Date: 20140515
  Serious: Yes (Hospitalization)
  Sender: FDA-Public Use
  Company Number: 1309295

PATIENT
  Age: 45 Year
  Sex: Male

DRUGS (8)
  1. VINCRISTINE SULFATE [Suspect]
     Indication: LYMPHOMA
     Dosage: 0.0714 MG (2 MG, 1 IN 28 DAYS)
     Dates: start: 20100506, end: 20100901
  2. MABTHERA [Suspect]
     Indication: LYMPHOMA
     Dosage: SEE IMAGE
     Route: 042
     Dates: start: 20080425, end: 20080516
  3. METHYLPREDNISOLONE [Suspect]
     Indication: PREMEDICATION
     Dosage: SEE IMAGE
     Dates: start: 20101116
  4. CYCLOPHOSPHAMIDE [Suspect]
     Indication: LYMPHOMA
     Dosage: 5 IN 28 DAYS
     Route: 048
     Dates: start: 20100506, end: 20100905
  5. DOXORUBICIN HYDROCHLORIDE [Suspect]
     Indication: LYMPHOMA
     Dosage: 1.8571 MG (52 MG, 1 IN 28 DAYS) INTRAVENOUS (NOT OTHERWISE SPECIFIED)
     Route: 042
     Dates: start: 20100506, end: 20100901
  6. PREDNISOLONE [Suspect]
     Indication: LYMPHOMA
     Dosage: 14.2857 MG (100 MG, 4 IN 28 DAYS) ORAL
     Route: 048
     Dates: start: 20100507, end: 20100905
  7. POLARAMINE [Concomitant]
  8. PARACETAMOL [Concomitant]

REACTIONS (4)
  - Malignant melanoma [None]
  - B-cell lymphoma [None]
  - Malignant neoplasm progression [None]
  - Skin graft [None]
